FAERS Safety Report 12381520 (Version 1)
Quarter: 2016Q2

REPORT INFORMATION
  Report Type: Spontaneous
  Country: AT (occurrence: AT)
  Receive Date: 20160518
  Receipt Date: 20160518
  Transmission Date: 20160815
  Serious: Yes (Other)
  Sender: FDA-Public Use
  Company Number: PHHY2016AT065357

PATIENT
  Age: 48 Year
  Sex: Male

DRUGS (1)
  1. CLINDAC SANDOZ [Suspect]
     Active Substance: CLINDAMYCIN\CLINDAMYCIN PHOSPHATE
     Indication: GINGIVITIS
     Dosage: 600 MG, BID
     Route: 065
     Dates: start: 20160420, end: 20160422

REACTIONS (7)
  - Depressed mood [Unknown]
  - Blister [Unknown]
  - Skin burning sensation [Unknown]
  - Oesophagitis [Unknown]
  - Rash [Unknown]
  - Tinea pedis [Unknown]
  - Hypersensitivity [Unknown]

NARRATIVE: CASE EVENT DATE: 201604
